FAERS Safety Report 9285715 (Version 3)
Quarter: 2013Q4

REPORT INFORMATION
  Report Type: Spontaneous
  Country: US (occurrence: US)
  Receive Date: 20130513
  Receipt Date: 20131113
  Transmission Date: 20140711
  Serious: Yes (Death, Hospitalization)
  Sender: FDA-Public Use
  Company Number: US-B.I. PHARMACEUTICALS,INC./RIDGEFIELD-2013-BI-13263BP

PATIENT
  Age: 68 Year
  Sex: Female

DRUGS (18)
  1. PRADAXA [Suspect]
     Indication: ATRIAL FIBRILLATION
     Dosage: 300 MG
     Route: 048
     Dates: start: 20110210, end: 20110426
  2. PLAVIX [Suspect]
     Dosage: 75 MG
     Route: 048
  3. XANAX [Concomitant]
     Route: 048
  4. NORVASC [Concomitant]
     Dosage: 10 MG
     Route: 048
  5. SINEMET CR [Concomitant]
     Route: 048
  6. CATAPRES [Concomitant]
     Dosage: 0.3 MG
     Route: 048
  7. LASIX [Concomitant]
     Dosage: 40 MG
     Route: 048
  8. NEURONTIN [Concomitant]
     Indication: PAIN
     Dosage: 600 MG
     Route: 048
  9. HYDRALAZINE [Concomitant]
     Dosage: 100 MG
     Route: 048
  10. VICODIN [Concomitant]
     Route: 048
  11. NOVOLOG [Concomitant]
     Route: 058
  12. LANTUS [Concomitant]
     Dosage: 90 U
     Route: 058
  13. IMDUR [Concomitant]
     Dosage: 60 MG
     Route: 048
  14. PRINIVIL [Concomitant]
     Dosage: 10 MG
     Route: 048
  15. LOPRESSOR [Concomitant]
     Dosage: 100 MG
     Route: 048
  16. IRON [Concomitant]
     Dosage: 50 MG
     Route: 048
  17. RYTHMOL [Concomitant]
     Dosage: 450 MG
     Route: 048
  18. ZOLOFT [Concomitant]
     Dosage: 75 MG
     Route: 048

REACTIONS (9)
  - Cardio-respiratory arrest [Fatal]
  - Gastrointestinal haemorrhage [Fatal]
  - Coagulopathy [Fatal]
  - Haemoptysis [Recovered/Resolved]
  - Haemorrhagic anaemia [Unknown]
  - Sepsis [Unknown]
  - Pneumonia [Unknown]
  - Respiratory failure [Unknown]
  - Epistaxis [Unknown]
